FAERS Safety Report 14921386 (Version 9)
Quarter: 2021Q4

REPORT INFORMATION
  Report Type: Spontaneous
  Country: CA (occurrence: CA)
  Receive Date: 20180522
  Receipt Date: 20211028
  Transmission Date: 20220303
  Serious: Yes (Hospitalization, Disabling, Other)
  Sender: FDA-Public Use
  Company Number: CA-BRISTOL-MYERS SQUIBB COMPANY-BMS-2018-044094

PATIENT
  Age: 41 Year
  Sex: Male
  Weight: 90 kg

DRUGS (56)
  1. ORENCIA [Suspect]
     Active Substance: ABATACEPT
     Indication: Psoriatic arthropathy
     Dosage: UNK
     Route: 058
  2. ORENCIA [Suspect]
     Active Substance: ABATACEPT
     Dosage: UNK
     Route: 065
  3. APREMILAST [Suspect]
     Active Substance: APREMILAST
     Indication: Rheumatoid arthritis
     Dosage: 30 MG, BID
     Route: 048
  4. APREMILAST [Suspect]
     Active Substance: APREMILAST
     Indication: Psoriatic arthropathy
     Dosage: 120 MILLIGRAM, QD
     Route: 065
  5. APREMILAST [Suspect]
     Active Substance: APREMILAST
     Indication: Psoriasis
  6. ADALIMUMAB [Suspect]
     Active Substance: ADALIMUMAB
     Indication: Psoriatic arthropathy
     Dosage: UNK
     Route: 058
  7. ADALIMUMAB [Suspect]
     Active Substance: ADALIMUMAB
     Dosage: UNK
     Route: 065
  8. IBUPROFEN [Suspect]
     Active Substance: IBUPROFEN
     Indication: Product used for unknown indication
     Dosage: 600 MILLIGRAM
     Route: 048
  9. LEFLUNOMIDE [Suspect]
     Active Substance: LEFLUNOMIDE
     Indication: Product used for unknown indication
     Route: 065
  10. FEBUXOSTAT [Suspect]
     Active Substance: FEBUXOSTAT
     Indication: Product used for unknown indication
     Dosage: 80 MILLIGRAM, BID
     Route: 065
  11. CERTOLIZUMAB PEGOL [Suspect]
     Active Substance: CERTOLIZUMAB PEGOL
     Indication: Psoriatic arthropathy
     Dosage: UNK MG, UNK
     Route: 058
  12. CYCLOSPORINE [Suspect]
     Active Substance: CYCLOSPORINE
     Indication: Product used for unknown indication
     Dosage: UNK
     Route: 048
  13. CYCLOSPORINE [Suspect]
     Active Substance: CYCLOSPORINE
     Dosage: UNK
     Route: 065
  14. ETANERCEPT [Suspect]
     Active Substance: ETANERCEPT
     Indication: Rheumatoid arthritis
     Dosage: UNK
     Route: 058
  15. ETANERCEPT [Suspect]
     Active Substance: ETANERCEPT
     Indication: Psoriatic arthropathy
  16. ETANERCEPT [Suspect]
     Active Substance: ETANERCEPT
     Indication: Psoriasis
  17. ENBREL [Suspect]
     Active Substance: ETANERCEPT
     Indication: Rheumatoid arthritis
     Route: 058
  18. ENBREL [Suspect]
     Active Substance: ETANERCEPT
     Indication: Psoriatic arthropathy
     Dosage: UNK
     Route: 065
  19. ENBREL [Suspect]
     Active Substance: ETANERCEPT
     Indication: Psoriasis
  20. INFLIXIMAB [Suspect]
     Active Substance: INFLIXIMAB
     Indication: Psoriatic arthropathy
     Route: 065
  21. OTEZLA [Suspect]
     Active Substance: APREMILAST
     Indication: Psoriatic arthropathy
     Dosage: 30 MILLIGRAM, BID
     Route: 048
  22. SULFASALAZINE [Suspect]
     Active Substance: SULFASALAZINE
     Indication: Product used for unknown indication
     Route: 005
  23. USTEKINUMAB [Suspect]
     Active Substance: USTEKINUMAB
     Indication: Psoriatic arthropathy
     Route: 065
  24. IBUPROFEN [Suspect]
     Active Substance: IBUPROFEN
     Indication: Product used for unknown indication
     Dosage: 600 MG, UNK
     Route: 048
  25. HUMIRA [Suspect]
     Active Substance: ADALIMUMAB
     Indication: Psoriatic arthropathy
     Route: 058
  26. SIMPONI [Suspect]
     Active Substance: GOLIMUMAB
     Indication: Psoriatic arthropathy
     Route: 058
  27. STELARA [Suspect]
     Active Substance: USTEKINUMAB
     Indication: Psoriatic arthropathy
     Route: 058
  28. GOLIMUMAB [Suspect]
     Active Substance: GOLIMUMAB
     Indication: Psoriatic arthropathy
     Route: 058
  29. CIMZIA [Suspect]
     Active Substance: CERTOLIZUMAB PEGOL
     Indication: Psoriatic arthropathy
     Route: 058
  30. MOTRIN [Suspect]
     Active Substance: IBUPROFEN
     Indication: Product used for unknown indication
     Dosage: 6 DF, QD
     Route: 048
  31. MOTRIN [Suspect]
     Active Substance: IBUPROFEN
     Dosage: 600 MG, UNK
     Route: 048
  32. LEFLUNOMIDE [Suspect]
     Active Substance: LEFLUNOMIDE
     Indication: Product used for unknown indication
     Route: 048
  33. SULFAMETHOXAZOLE [Suspect]
     Active Substance: SULFAMETHOXAZOLE
     Indication: Product used for unknown indication
     Dosage: 600 MILLIGRAM
     Route: 048
  34. NAPROXEN [Suspect]
     Active Substance: NAPROXEN
     Indication: Product used for unknown indication
     Dosage: 600 MILLIGRAM, QD
     Route: 048
  35. BENADRYL [Concomitant]
     Active Substance: DIPHENHYDRAMINE HYDROCHLORIDE
     Indication: Product used for unknown indication
     Route: 065
  36. COLCHICINE [Concomitant]
     Active Substance: COLCHICINE
     Indication: Product used for unknown indication
     Dosage: 0.6 MG, UNK
     Route: 048
  37. COLCHICINE [Concomitant]
     Active Substance: COLCHICINE
     Dosage: 6.0 MILLIGRAM
     Route: 048
  38. DEXILANT [Concomitant]
     Active Substance: DEXLANSOPRAZOLE
     Indication: Product used for unknown indication
     Route: 065
  39. FOLIC ACID [Concomitant]
     Active Substance: FOLIC ACID
     Indication: Product used for unknown indication
     Route: 065
  40. OXYCODONE HYDROCHLORIDE [Concomitant]
     Active Substance: OXYCODONE HYDROCHLORIDE
     Indication: Product used for unknown indication
     Dosage: 40.0 MG, UNK
     Route: 065
  41. OXYCODONE HYDROCHLORIDE [Concomitant]
     Active Substance: OXYCODONE HYDROCHLORIDE
     Dosage: 10.0 MG, UNK
     Route: 065
  42. ULORIC [Concomitant]
     Active Substance: FEBUXOSTAT
     Indication: Product used for unknown indication
     Dosage: 80 MG, BID
     Route: 048
  43. ULORIC [Concomitant]
     Active Substance: FEBUXOSTAT
     Dosage: 8 MILLIGRAM, BID
     Route: 048
  44. GRAVOL [Concomitant]
     Active Substance: DIMENHYDRINATE
     Indication: Product used for unknown indication
     Route: 065
  45. METHOTREXATE [Concomitant]
     Active Substance: METHOTREXATE
     Indication: Rheumatoid arthritis
     Dosage: 4 DOSAGE FORM, QWK
     Route: 065
  46. METHOTREXATE [Concomitant]
     Active Substance: METHOTREXATE
     Dosage: 2.5 MILLIGRAM, QWK
     Route: 065
  47. METHOTREXATE [Concomitant]
     Active Substance: METHOTREXATE
     Dosage: 10 MILLIGRAM, QWK
     Route: 065
  48. METHOTREXATE [Concomitant]
     Active Substance: METHOTREXATE
     Dosage: 4 MILLIGRAM, QWK
     Route: 065
  49. NITRAZEPAM [Concomitant]
     Active Substance: NITRAZEPAM
     Indication: Product used for unknown indication
     Dosage: 5 MILLIGRAM
     Route: 065
  50. NITRAZEPAM [Concomitant]
     Active Substance: NITRAZEPAM
     Indication: Product used for unknown indication
     Dosage: 5 MG, UNK
     Route: 065
  51. NITRAZEPAM [Concomitant]
     Active Substance: NITRAZEPAM
     Dosage: 50 MILLIGRAM
     Route: 065
  52. OXYCODONE [Concomitant]
     Active Substance: OXYCODONE
     Indication: Product used for unknown indication
     Dosage: 40 MG, UNK
     Route: 065
  53. OXYCODONE [Concomitant]
     Active Substance: OXYCODONE
     Indication: Product used for unknown indication
     Route: 065
  54. ACETAMINOPHEN\DIPHENHYDRAMINE\PHENYLPROPANOLAMINE [Concomitant]
     Active Substance: ACETAMINOPHEN\DIPHENHYDRAMINE\PHENYLPROPANOLAMINE
     Indication: Product used for unknown indication
     Route: 065
  55. FEBUXOSTAT [Concomitant]
     Active Substance: FEBUXOSTAT
     Indication: Product used for unknown indication
     Route: 065
  56. OXYCODONE [Concomitant]
     Active Substance: OXYCODONE
     Indication: Product used for unknown indication
     Route: 065

REACTIONS (21)
  - Alanine aminotransferase increased [Not Recovered/Not Resolved]
  - C-reactive protein abnormal [Not Recovered/Not Resolved]
  - Aspartate aminotransferase increased [Not Recovered/Not Resolved]
  - Drug hypersensitivity [Not Recovered/Not Resolved]
  - Drug ineffective [Not Recovered/Not Resolved]
  - Drug intolerance [Not Recovered/Not Resolved]
  - Enthesopathy [Not Recovered/Not Resolved]
  - Erythema [Not Recovered/Not Resolved]
  - Headache [Not Recovered/Not Resolved]
  - Loss of personal independence in daily activities [Not Recovered/Not Resolved]
  - Nausea [Not Recovered/Not Resolved]
  - Synovitis [Not Recovered/Not Resolved]
  - Tenosynovitis [Not Recovered/Not Resolved]
  - Treatment failure [Not Recovered/Not Resolved]
  - Tendonitis [Not Recovered/Not Resolved]
  - Psoriatic arthropathy [Not Recovered/Not Resolved]
  - Tongue disorder [Not Recovered/Not Resolved]
  - Alanine aminotransferase abnormal [Not Recovered/Not Resolved]
  - C-reactive protein increased [Unknown]
  - General physical health deterioration [Unknown]
  - Hypersensitivity [Unknown]
